FAERS Safety Report 6372185-1 (Version None)
Quarter: 2009Q3

REPORT INFORMATION
  Report Type: 
  Country: None (occurrence: None)
  Receive Date: 20090924
  Receipt Date: 20090918
  Transmission Date: 20100115
  Serious: Yes (Other)
  Sender: FDA-Public Use
  Company Number: US-JNJCH-2009018333

PATIENT
  Age: 81 Year
  Sex: Male
  Weight: 88.5 kg

DRUGS (9)
  1. LISTERINE WHITENING PRE-BRUSH RINSE [Suspect]
     Indication: DENTAL CARE
     Dosage: TEXT:1/2 CAPFUL TWICE DAILY
     Route: 050
  2. LISTERINE [Suspect]
     Indication: DENTAL CARE
     Dosage: TEXT:UNKNOWN
     Route: 050
  3. FINASTERIDE [Suspect]
     Indication: FLUID RETENTION
     Dosage: TEXT:5 MG UNSPECIFIED
     Route: 065
  4. POTASSIUM CHLORIDE [Concomitant]
     Indication: FLUID RETENTION
     Dosage: TEXT:8MG UNSPECIFIED
     Route: 065
  5. TERAZOSIN HCL [Concomitant]
     Indication: HYPERTENSION
     Dosage: TEXT:10 MG UNSPECIFIED
     Route: 065
  6. AMLODIPINE BESYLATE AND VALSARTAN [Concomitant]
     Indication: HYPERTENSION
     Dosage: TEXT:5 NG UNSPECIFIED
     Route: 065
  7. METOPROLOL TARTRATE [Concomitant]
     Indication: HYPERTENSION
     Dosage: TEXT:25 MG UNSPECIFIED
     Route: 065
  8. FUROSEMIDE [Concomitant]
     Indication: FLUID RETENTION
     Dosage: TEXT:40 MG UNSPECIFIED
     Route: 065
  9. PRAVASTATIN [Concomitant]
     Indication: BLOOD CHOLESTEROL
     Dosage: TEXT:40 MG UNSPECIFIED
     Route: 065

REACTIONS (11)
  - BREATH ODOUR [None]
  - DIZZINESS [None]
  - DYSGEUSIA [None]
  - FEAR [None]
  - GINGIVAL DISCOLOURATION [None]
  - GINGIVAL PAIN [None]
  - GINGIVITIS [None]
  - MALAISE [None]
  - NAUSEA [None]
  - PAIN [None]
  - STOMATITIS [None]
